FAERS Safety Report 8473733-8 (Version None)
Quarter: 2012Q2

REPORT INFORMATION
  Report Type: 
  Country: None (occurrence: None)
  Receive Date: 20120628
  Receipt Date: 20111020
  Transmission Date: 20120825
  Serious: Yes (Death)
  Sender: FDA-Public Use
  Company Number: US-MYLANLABS-2011S1020852

PATIENT
  Age: 49 Year
  Sex: Male

DRUGS (8)
  1. BENZTROPINE MESYLATE [Concomitant]
  2. FLUPHENAZINE HCL [Concomitant]
  3. DEPACON [Concomitant]
     Route: 030
  4. CLOZAPINE [Suspect]
     Dosage: NOON
     Route: 048
  5. TRAZODONE HCL [Concomitant]
  6. CLOZAPINE [Suspect]
     Dosage: NOON
     Route: 048
  7. CLOZAPINE [Suspect]
     Indication: SCHIZOPHRENIA, PARANOID TYPE
     Route: 048
  8. LITHIUM CARBONATE [Concomitant]

REACTIONS (1)
  - SCHIZOPHRENIA [None]
